FAERS Safety Report 10684822 (Version 1)
Quarter: 2014Q4

REPORT INFORMATION
  Report Type: Spontaneous
  Country: FR (occurrence: FR)
  Receive Date: 20141231
  Receipt Date: 20141231
  Transmission Date: 20150529
  Serious: Yes (Hospitalization)
  Sender: FDA-Public Use
  Company Number: FR-SA-2014SA177341

PATIENT
  Age: 66 Year
  Sex: Male
  Weight: 79 kg

DRUGS (3)
  1. TAXOTERE [Suspect]
     Active Substance: DOCETAXEL
     Indication: ADENOSQUAMOUS CELL LUNG CANCER
     Route: 065
     Dates: start: 20141020, end: 20141020
  2. TAXOTERE [Suspect]
     Active Substance: DOCETAXEL
     Indication: ADENOSQUAMOUS CELL LUNG CANCER
     Route: 065
     Dates: start: 20140926, end: 20140926
  3. TAXOTERE [Suspect]
     Active Substance: DOCETAXEL
     Indication: ADENOSQUAMOUS CELL LUNG CANCER
     Route: 042
     Dates: start: 20141110, end: 20141110

REACTIONS (1)
  - Pancreatitis acute [Recovered/Resolved]

NARRATIVE: CASE EVENT DATE: 20141111
